FAERS Safety Report 20345113 (Version 1)
Quarter: 2022Q1

REPORT INFORMATION
  Report Type: Spontaneous
  Country: FR (occurrence: FR)
  Receive Date: 20220118
  Receipt Date: 20220118
  Transmission Date: 20220423
  Serious: Yes (Other)
  Sender: FDA-Public Use
  Company Number: None

PATIENT
  Age: 41 Year
  Sex: Female
  Weight: 77 kg

DRUGS (1)
  1. METHOTREXATE [Suspect]
     Active Substance: METHOTREXATE
     Indication: Ectopic pregnancy
     Dosage: 80 MILLIGRAM
     Route: 030
     Dates: start: 20211207

REACTIONS (4)
  - Hepatic cytolysis [Recovered/Resolved]
  - Aphthous ulcer [Recovered/Resolved]
  - Rash pruritic [Recovered/Resolved]
  - Full blood count abnormal [Recovered/Resolved]

NARRATIVE: CASE EVENT DATE: 20211207
